FAERS Safety Report 5708551-4 (Version None)
Quarter: 2008Q2

REPORT INFORMATION
  Report Type: 
  Country: None (occurrence: None)
  Receive Date: 20080417
  Receipt Date: 20080410
  Transmission Date: 20081010
  Serious: Yes (Other)
  Sender: FDA-Public Use
  Company Number: FR-ELI_LILLY_AND_COMPANY-FR200804003280

PATIENT
  Age: 51 Year
  Sex: Male

DRUGS (2)
  1. ZYPREXA [Suspect]
     Indication: MANIA
     Route: 048
     Dates: start: 20071001, end: 20080201
  2. DEPAKOTE [Concomitant]
     Indication: MANIA
     Dates: start: 20071001

REACTIONS (1)
  - METABOLIC SYNDROME [None]
